FAERS Safety Report 17055999 (Version 1)
Quarter: 2019Q4

REPORT INFORMATION
  Report Type: Spontaneous
  Country: US (occurrence: US)
  Receive Date: 20191121
  Receipt Date: 20191121
  Transmission Date: 20200122
  Serious: No
  Sender: FDA-Public Use
  Company Number: US-ZYDUS-039622

PATIENT
  Age: 83 Year
  Sex: Female

DRUGS (2)
  1. CHOLESTYRAMINE. [Suspect]
     Active Substance: CHOLESTYRAMINE
     Indication: ABDOMINAL PAIN UPPER
     Route: 048
     Dates: start: 20190720, end: 20190722
  2. ATENOLOL. [Concomitant]
     Active Substance: ATENOLOL
     Indication: MYOCARDIAL INFARCTION
     Route: 048

REACTIONS (6)
  - Productive cough [Recovered/Resolved]
  - Choking [Recovered/Resolved]
  - Dyspnoea [Recovered/Resolved]
  - Foreign body in respiratory tract [Recovered/Resolved]
  - Product use in unapproved indication [Recovered/Resolved]
  - Product physical consistency issue [Recovered/Resolved]

NARRATIVE: CASE EVENT DATE: 20190720
